FAERS Safety Report 12948886 (Version 1)
Quarter: 2016Q4

REPORT INFORMATION
  Report Type: Spontaneous
  Country: HR (occurrence: HR)
  Receive Date: 20161117
  Receipt Date: 20161117
  Transmission Date: 20170207
  Serious: Yes (Other)
  Sender: FDA-Public Use
  Company Number: HR-TEVA-711474ACC

PATIENT
  Age: 71 Year
  Sex: Male

DRUGS (4)
  1. SINERSUL [Suspect]
     Active Substance: SULFAMETHOXAZOLE\TRIMETHOPRIM
     Indication: CYSTITIS
     Dosage: 4 DOSAGE FORMS DAILY;
     Route: 048
     Dates: start: 20160909, end: 20160924
  2. SIMVAX [Concomitant]
     Dosage: 20 MILLIGRAM DAILY;
     Route: 048
  3. RINOLAN [Concomitant]
     Active Substance: LORATADINE
     Dosage: 10 MILLIGRAM DAILY;
     Route: 048
  4. SINERSUL [Suspect]
     Active Substance: SULFAMETHOXAZOLE\TRIMETHOPRIM
     Dosage: 2 DOSAGE FORMS DAILY;
     Route: 048
     Dates: start: 201610, end: 201610

REACTIONS (3)
  - Erythema [Recovering/Resolving]
  - Choking [Recovering/Resolving]
  - Oral herpes [Recovering/Resolving]

NARRATIVE: CASE EVENT DATE: 20160924
